FAERS Safety Report 6010052-3 (Version None)
Quarter: 2008Q4

REPORT INFORMATION
  Report Type: 
  Country: None (occurrence: None)
  Receive Date: 20081218
  Receipt Date: 20081215
  Transmission Date: 20090506
  Serious: Yes (Life-Threatening)
  Sender: FDA-Public Use
  Company Number: FR-ASTRAZENECA-2008CG01850

PATIENT
  Age: 26113 Day
  Sex: Male

DRUGS (5)
  1. TENORMIN [Suspect]
     Route: 042
     Dates: start: 20080910, end: 20080910
  2. TENORMIN [Interacting]
     Route: 042
     Dates: start: 20080910, end: 20080912
  3. SOLIAN [Interacting]
     Indication: MENTAL DISORDER
     Route: 048
     Dates: start: 20080905, end: 20080912
  4. CORDARONE [Interacting]
     Indication: ATRIAL FIBRILLATION
     Route: 048
  5. DIGOXINE [Concomitant]

REACTIONS (4)
  - BRADYCARDIA [None]
  - CARDIAC ARREST [None]
  - DRUG INTERACTION [None]
  - SINUS ARREST [None]
